FAERS Safety Report 7083629-4 (Version None)
Quarter: 2010Q4

REPORT INFORMATION
  Report Type: 
  Country: None (occurrence: None)
  Receive Date: 20101104
  Receipt Date: 20101029
  Transmission Date: 20110411
  Serious: Yes (Other)
  Sender: FDA-Public Use
  Company Number: CHPA2010DE16166

PATIENT
  Sex: Female
  Weight: 63 kg

DRUGS (1)
  1. NICOTINELL TTS 20 (NCH) [Suspect]
     Indication: SMOKING CESSATION THERAPY
     Dosage: 14 MG, QD
     Route: 062
     Dates: start: 20100927, end: 20101001

REACTIONS (2)
  - HYPERSENSITIVITY [None]
  - RASH PRURITIC [None]
